FAERS Safety Report 9372236 (Version 1)
Quarter: 2013Q2

REPORT INFORMATION
  Report Type: Report from Study
  Country: US (occurrence: US)
  Receive Date: 20130627
  Receipt Date: 20130627
  Transmission Date: 20140414
  Serious: Yes (Other)
  Sender: FDA-Public Use
  Company Number: US-JNJFOC-20130311925

PATIENT
  Sex: Female

DRUGS (2)
  1. NUCYNTA ER [Suspect]
     Indication: MIGRAINE
     Route: 048
  2. NUCYNTA ER [Suspect]
     Indication: MIGRAINE
     Route: 048

REACTIONS (6)
  - Intentional overdose [Unknown]
  - Serotonin syndrome [Unknown]
  - Convulsion [Unknown]
  - Mental status changes [Recovered/Resolved]
  - Confusional state [Recovered/Resolved]
  - Somnolence [Unknown]
